FAERS Safety Report 8236437-2 (Version None)
Quarter: 2012Q1

REPORT INFORMATION
  Report Type: 
  Country: None (occurrence: None)
  Receive Date: 20120327
  Receipt Date: 20120323
  Transmission Date: 20120608
  Serious: Yes (Other)
  Sender: FDA-Public Use
  Company Number: US-PFIZER INC-2012076135

PATIENT
  Sex: Female
  Weight: 46.712 kg

DRUGS (2)
  1. PREMARIN [Suspect]
     Indication: OFF LABEL USE
     Dosage: UNK
     Route: 067
     Dates: start: 20120311
  2. PREMARIN [Suspect]
     Indication: BLADDER DISORDER

REACTIONS (2)
  - VAGINAL HAEMORRHAGE [None]
  - VAGINAL INFECTION [None]
